FAERS Safety Report 9804853 (Version 2)
Quarter: 2014Q1

REPORT INFORMATION
  Report Type: Spontaneous
  Country: US (occurrence: US)
  Receive Date: 20140108
  Receipt Date: 20140216
  Transmission Date: 20141002
  Serious: Yes (Hospitalization, Other)
  Sender: FDA-Public Use
  Company Number: US-TEVA-454777USA

PATIENT
  Age: 48 Year
  Sex: Male

DRUGS (6)
  1. COPAXONE [Suspect]
     Indication: MULTIPLE SCLEROSIS
     Dates: start: 20050502
  2. STEROIDS [Suspect]
  3. OXCONTIN [Concomitant]
     Dosage: 60 MILLIGRAM DAILY;
  4. OXYCODONE [Concomitant]
     Dosage: 60 MILLIGRAM DAILY;
  5. AGGRENOX [Concomitant]
     Dosage: 25/250
  6. BACLOFEN [Concomitant]

REACTIONS (12)
  - Hypertension [Recovered/Resolved]
  - Oesophageal stenosis [Not Recovered/Not Resolved]
  - Cerebrovascular accident [Unknown]
  - Cold sweat [Not Recovered/Not Resolved]
  - Chest pain [Unknown]
  - Hyperhidrosis [Not Recovered/Not Resolved]
  - Dyspnoea [Not Recovered/Not Resolved]
  - Panic attack [Not Recovered/Not Resolved]
  - Neck pain [Not Recovered/Not Resolved]
  - Back pain [Not Recovered/Not Resolved]
  - Headache [Not Recovered/Not Resolved]
  - Nerve injury [Not Recovered/Not Resolved]
